FAERS Safety Report 7463590-0 (Version None)
Quarter: 2011Q2

REPORT INFORMATION
  Report Type: 
  Country: None (occurrence: None)
  Receive Date: 20110506
  Receipt Date: 20110428
  Transmission Date: 20111010
  Serious: Yes (Hospitalization)
  Sender: FDA-Public Use
  Company Number: Z0007714B

PATIENT
  Sex: Male
  Weight: 100.5 kg

DRUGS (1)
  1. ARZERRA [Suspect]
     Route: 042
     Dates: start: 20110126

REACTIONS (1)
  - FEBRILE NEUTROPENIA [None]
